FAERS Safety Report 10082936 (Version 1)
Quarter: 2014Q2

REPORT INFORMATION
  Report Type: Spontaneous
  Country: AT (occurrence: AT)
  Receive Date: 20140417
  Receipt Date: 20140417
  Transmission Date: 20141212
  Serious: Yes (Other)
  Sender: FDA-Public Use
  Company Number: AT-ROCHE-1379984

PATIENT
  Sex: Female

DRUGS (4)
  1. AVASTIN [Suspect]
     Indication: OVARIAN CANCER
     Route: 065
     Dates: start: 20130104, end: 20131223
  2. CARBOPLATIN [Suspect]
     Indication: OVARIAN CANCER
     Route: 065
     Dates: start: 20130104, end: 20131223
  3. EXFORGE HCT [Concomitant]
     Indication: HYPERTONIA
     Dosage: FORM STRENGHTH : 5/160
     Route: 065
  4. EXFORGE [Concomitant]
     Dosage: FORM STRENGTH: 5/80 MG
     Route: 065

REACTIONS (2)
  - Renal failure [Unknown]
  - Thrombotic microangiopathy [Unknown]
